FAERS Safety Report 5780860-2 (Version None)
Quarter: 2008Q2

REPORT INFORMATION
  Report Type: 
  Country: None (occurrence: None)
  Receive Date: 20080620
  Receipt Date: 20080609
  Transmission Date: 20081010
  Serious: Yes (Other)
  Sender: FDA-Public Use
  Company Number: US-PFIZER INC-2008029403

PATIENT
  Sex: Male
  Weight: 83 kg

DRUGS (12)
  1. CHANTIX [Suspect]
     Indication: SMOKING CESSATION THERAPY
     Dates: start: 20080301, end: 20080331
  2. TRICOR [Suspect]
     Dates: start: 20080301, end: 20080101
  3. ZOLOFT [Concomitant]
  4. SOMA [Concomitant]
  5. ACCUPRIL [Concomitant]
  6. LORCET-HD [Concomitant]
  7. VALIUM [Concomitant]
  8. ELAVIL [Concomitant]
  9. AMBIEN [Concomitant]
  10. LUNESTA [Concomitant]
  11. ZESTRIL [Concomitant]
  12. ATENOLOL [Concomitant]

REACTIONS (14)
  - ABNORMAL DREAMS [None]
  - ANOREXIA [None]
  - ARTHRALGIA [None]
  - ASTHENIA [None]
  - BLOOD PRESSURE INCREASED [None]
  - DIZZINESS [None]
  - FATIGUE [None]
  - HALLUCINATION [None]
  - HEADACHE [None]
  - INFLUENZA LIKE ILLNESS [None]
  - INSOMNIA [None]
  - MYALGIA [None]
  - NAUSEA [None]
  - ORTHOSTATIC HYPOTENSION [None]
